FAERS Safety Report 16682796 (Version 2)
Quarter: 2019Q3

REPORT INFORMATION
  Report Type: Spontaneous
  Country: US (occurrence: US)
  Receive Date: 20190808
  Receipt Date: 20190930
  Transmission Date: 20191004
  Serious: No
  Sender: FDA-Public Use
  Company Number: US-PFIZER INC-2016362820

PATIENT
  Age: 62 Year
  Sex: Male

DRUGS (26)
  1. PERCOCET [Concomitant]
     Active Substance: ACETAMINOPHEN\OXYCODONE HYDROCHLORIDE
     Indication: PAIN
     Dosage: UNK UNK, AS NEEDED (10-325 MG PER TABLET, 1 TABLET BY MOUTH EVERY 8 HOURS AS NEEDED)
     Route: 048
  2. COZAAR [Concomitant]
     Active Substance: LOSARTAN POTASSIUM
     Dosage: 100 MG, DAILY
     Route: 048
  3. NEURONTIN [Concomitant]
     Active Substance: GABAPENTIN
     Dosage: 300 MG, 3X/DAY
     Route: 048
  4. NOVOLOG [Concomitant]
     Active Substance: INSULIN ASPART
     Dosage: 20 IU, DAILY
  5. GLUCOPHAGE XR [Concomitant]
     Active Substance: METFORMIN HYDROCHLORIDE
     Dosage: 1000 MG, 2X/DAY, (BEFORE BREAKFAST AND DINNER)
     Route: 048
  6. VICTOZA [Concomitant]
     Active Substance: LIRAGLUTIDE
     Dosage: 1.8 MG/ML, DAILY (INJECT 0.3 ML (1.8 MG TOTAL) UNDER THE SKIN DAILY)
     Route: 059
  7. ASPIRIN (E.C.) [Concomitant]
     Active Substance: ASPIRIN
     Dosage: 81 MG, DAILY
     Route: 048
  8. ULTRAM ER [Concomitant]
     Active Substance: TRAMADOL HYDROCHLORIDE
     Indication: PAIN
     Dosage: 50 MG, AS NEEDED
     Route: 048
  9. LYRICA [Suspect]
     Active Substance: PREGABALIN
     Indication: TYPE 2 DIABETES MELLITUS
  10. HUMALOG [Concomitant]
     Active Substance: INSULIN LISPRO
     Dosage: 20 IU, UNK (INJECT UPTO 0.2 ML (20 UNITS TOTAL) UNDER THE SKIN IN DIVIDED DOSES)
     Route: 059
  11. ADVIL 12HOUR [Concomitant]
     Active Substance: IBUPROFEN
     Indication: PAIN
     Dosage: 800 MG, AS NEEDED, (EVERY 6 HOURS)
     Route: 048
  12. GLUCOPHAGE XR [Concomitant]
     Active Substance: METFORMIN HYDROCHLORIDE
     Dosage: 1000 MG, DAILY, (WITH BREAKFAST)
     Route: 048
  13. ALCOHOL SWABS [ETHANOL] [Concomitant]
     Dosage: UNK UNK, DAILY, (8 TIMES DAILY)
  14. LYRICA [Suspect]
     Active Substance: PREGABALIN
     Indication: DIABETIC NEUROPATHY
     Dosage: 300 MG, 2X/DAY (2 TABLETS TWICE DAILY)
     Route: 048
  15. VITAMIN D3 [Concomitant]
     Active Substance: CHOLECALCIFEROL
     Dosage: UNK UNK, DAILY (1 TABLET BY MOUTH DAILY)
     Route: 048
  16. LANTUS [Concomitant]
     Active Substance: INSULIN GLARGINE
     Dosage: 60 IU, DAILY
     Route: 059
  17. ROBAXIN [Concomitant]
     Active Substance: METHOCARBAMOL
     Indication: MUSCLE SPASMS
     Dosage: 500 MG, AS NEEDED, (3 TIMES A DAY)
     Route: 048
  18. CINNAMON. [Concomitant]
     Active Substance: CINNAMON
     Dosage: 100 MG, 3X/DAY, (WITH MEALS)
     Route: 048
  19. CYMBALTA [Concomitant]
     Active Substance: DULOXETINE HYDROCHLORIDE
     Dosage: 60 MG, DAILY
     Route: 048
  20. NEURONTIN [Concomitant]
     Active Substance: GABAPENTIN
     Indication: NEUROPATHY PERIPHERAL
     Dosage: 900 MG, 4X/DAY
     Route: 048
  21. METANX [Concomitant]
     Active Substance: LEVOMEFOLATE CALCIUM\METHYLCOBALAMIN\PYRIDOXAL PHOSPHATE ANHYDROUS
     Dosage: UNK UNK, 2X/DAY (1 TABLET BY MOUTH 2 (TWO) TIMES A DAY)
     Route: 048
  22. DESYREL [Concomitant]
     Active Substance: TRAZODONE HYDROCHLORIDE
     Dosage: 100 MG, 1X/DAY, (NIGHTY)
     Route: 048
  23. GLUCOPHAGE [Concomitant]
     Active Substance: METFORMIN HYDROCHLORIDE
     Dosage: 1000 MG, DAILY, (WITH BREAKFAST)
     Route: 048
  24. ALCOHOL SWABS [ETHANOL] [Concomitant]
     Dosage: UNK UNK, DAILY, (8 TIMES DAILY)
  25. LIPITOR [Concomitant]
     Active Substance: ATORVASTATIN CALCIUM
     Dosage: 40 MG, DAILY
     Route: 048
  26. OMEGA-3 FATTY ACIDS [Concomitant]
     Active Substance: OMEGA-3 FATTY ACIDS
     Dosage: 1 G, 2X/DAY
     Route: 048

REACTIONS (1)
  - Feeling abnormal [Unknown]
